FAERS Safety Report 10479691 (Version 1)
Quarter: 2014Q3

REPORT INFORMATION
  Report Type: Spontaneous
  Country: US (occurrence: None)
  Receive Date: 20140926
  Receipt Date: 20140926
  Transmission Date: 20150326
  Serious: Yes (Life-Threatening)
  Sender: FDA-Public Use
  Company Number: None

PATIENT
  Age: 17 Year
  Sex: Male
  Weight: 60 kg

DRUGS (6)
  1. CEFOTAXIME [Concomitant]
     Active Substance: CEFOTAXIME\CEFOTAXIME SODIUM
  2. PANTOPRAZOLE [Concomitant]
     Active Substance: PANTOPRAZOLE SODIUM
  3. VANCOMYCIN [Concomitant]
     Active Substance: VANCOMYCIN
  4. ALBUTEROL SULFATE. [Suspect]
     Active Substance: ALBUTEROL SULFATE
     Indication: STATUS ASTHMATICUS
     Dosage: 20MG/HR, CONTINOUS, NEBULIZED?
  5. IPRATROPIUM [Concomitant]
     Active Substance: IPRATROPIUM
  6. MIDAZOLAM [Concomitant]
     Active Substance: MIDAZOLAM\MIDAZOLAM HYDROCHLORIDE

REACTIONS (2)
  - Hypotension [None]
  - Lactic acidosis [None]
